FAERS Safety Report 25946450 (Version 1)
Quarter: 2025Q4

REPORT INFORMATION
  Report Type: Spontaneous
  Country: EU (occurrence: EU)
  Receive Date: 20251022
  Receipt Date: 20251022
  Transmission Date: 20260118
  Serious: Yes (Hospitalization, Other)
  Sender: AUROBINDO
  Company Number: EU-ADIENNEP-2025AD000759

PATIENT
  Age: 18 Year
  Sex: Male

DRUGS (6)
  1. FLUDARABINE [Suspect]
     Active Substance: FLUDARABINE PHOSPHATE
     Indication: Allogenic stem cell transplantation
     Dosage: 50 MILLIGRAM/KILOGRAM
     Route: 065
     Dates: start: 2023, end: 2023
  2. MYCOPHENOLIC ACID [Suspect]
     Active Substance: MYCOPHENOLIC ACID
     Indication: Prophylaxis against graft versus host disease
     Dosage: UNK (STARTING ON DAY +5  )
     Route: 065
     Dates: start: 2023
  3. THIOTEPA [Suspect]
     Active Substance: THIOTEPA
     Indication: Allogenic stem cell transplantation
     Dosage: 5 MILLIGRAM/KILOGRAM
     Route: 065
     Dates: start: 2023, end: 2023
  4. BUSULFAN [Suspect]
     Active Substance: BUSULFAN
     Indication: Allogenic stem cell transplantation
     Dosage: 3.2 MILLIGRAM/KILOGRAM
     Route: 042
     Dates: start: 2023, end: 2023
  5. CYCLOPHOSPHAMIDE [Suspect]
     Active Substance: CYCLOPHOSPHAMIDE
     Indication: Prophylaxis against graft versus host disease
     Dosage: 50 MILLIGRAM/KILOGRAM
     Route: 065
     Dates: start: 2023, end: 2023
  6. SIROLIMUS [Suspect]
     Active Substance: SIROLIMUS
     Indication: Prophylaxis against graft versus host disease
     Dosage: UNK (MEAN: 8.7 NG/ML)
     Route: 065
     Dates: start: 2023

REACTIONS (4)
  - Pneumonia pneumococcal [Recovered/Resolved]
  - Chronic graft versus host disease in skin [Recovered/Resolved]
  - Chronic graft versus host disease oral [Recovered/Resolved]
  - Chronic graft versus host disease in eye [Recovered/Resolved]
